FAERS Safety Report 5892954-1 (Version None)
Quarter: 2008Q3

REPORT INFORMATION
  Report Type: 
  Country: None (occurrence: None)
  Receive Date: 20080919
  Receipt Date: 20080908
  Transmission Date: 20090109
  Serious: Yes (Hospitalization, Other)
  Sender: FDA-Public Use
  Company Number: GXKR2008NO08725

PATIENT
  Age: 80 Year
  Sex: Female

DRUGS (31)
  1. CITALOPRAM HYDROBROMIDE [Suspect]
     Indication: DEPRESSION
     Dosage: 20 MG, QD, ORAL
     Route: 048
     Dates: start: 20080311, end: 20080507
  2. SEROQUEL [Suspect]
     Indication: HALLUCINATION, AUDITORY
     Dosage: SEE IMAGE
     Route: 048
     Dates: start: 20080314
  3. SEROQUEL [Suspect]
     Indication: ILLUSION
     Dosage: SEE IMAGE
     Route: 048
     Dates: start: 20080314
  4. SEROQUEL [Suspect]
     Indication: PSYCHOTIC DISORDER
     Dosage: SEE IMAGE
     Route: 048
     Dates: start: 20080314
  5. SEROQUEL [Suspect]
     Indication: HALLUCINATION, AUDITORY
     Dosage: SEE IMAGE
     Route: 048
     Dates: start: 20080326
  6. SEROQUEL [Suspect]
     Indication: ILLUSION
     Dosage: SEE IMAGE
     Route: 048
     Dates: start: 20080326
  7. SEROQUEL [Suspect]
     Indication: PSYCHOTIC DISORDER
     Dosage: SEE IMAGE
     Route: 048
     Dates: start: 20080326
  8. SEROQUEL [Suspect]
     Indication: HALLUCINATION, AUDITORY
     Dosage: SEE IMAGE
     Route: 048
     Dates: start: 20080402
  9. SEROQUEL [Suspect]
     Indication: ILLUSION
     Dosage: SEE IMAGE
     Route: 048
     Dates: start: 20080402
  10. SEROQUEL [Suspect]
     Indication: PSYCHOTIC DISORDER
     Dosage: SEE IMAGE
     Route: 048
     Dates: start: 20080402
  11. SEROQUEL [Suspect]
     Indication: HALLUCINATION, AUDITORY
     Dosage: SEE IMAGE
     Route: 048
     Dates: start: 20080404
  12. SEROQUEL [Suspect]
     Indication: ILLUSION
     Dosage: SEE IMAGE
     Route: 048
     Dates: start: 20080404
  13. SEROQUEL [Suspect]
     Indication: PSYCHOTIC DISORDER
     Dosage: SEE IMAGE
     Route: 048
     Dates: start: 20080404
  14. SEROQUEL [Suspect]
     Indication: HALLUCINATION, AUDITORY
     Dosage: SEE IMAGE
     Route: 048
     Dates: start: 20080407
  15. SEROQUEL [Suspect]
     Indication: ILLUSION
     Dosage: SEE IMAGE
     Route: 048
     Dates: start: 20080407
  16. SEROQUEL [Suspect]
     Indication: PSYCHOTIC DISORDER
     Dosage: SEE IMAGE
     Route: 048
     Dates: start: 20080407
  17. SEROQUEL [Suspect]
     Indication: HALLUCINATION, AUDITORY
     Dosage: SEE IMAGE
     Route: 048
     Dates: start: 20080414
  18. SEROQUEL [Suspect]
     Indication: ILLUSION
     Dosage: SEE IMAGE
     Route: 048
     Dates: start: 20080414
  19. SEROQUEL [Suspect]
     Indication: PSYCHOTIC DISORDER
     Dosage: SEE IMAGE
     Route: 048
     Dates: start: 20080414
  20. SEROQUEL [Suspect]
     Indication: HALLUCINATION, AUDITORY
     Dosage: SEE IMAGE
     Route: 048
     Dates: start: 20080417
  21. SEROQUEL [Suspect]
     Indication: ILLUSION
     Dosage: SEE IMAGE
     Route: 048
     Dates: start: 20080417
  22. SEROQUEL [Suspect]
     Indication: PSYCHOTIC DISORDER
     Dosage: SEE IMAGE
     Route: 048
     Dates: start: 20080417
  23. SEROQUEL [Suspect]
     Indication: HALLUCINATION, AUDITORY
     Dosage: SEE IMAGE
     Route: 048
     Dates: start: 20080420
  24. SEROQUEL [Suspect]
     Indication: ILLUSION
     Dosage: SEE IMAGE
     Route: 048
     Dates: start: 20080420
  25. SEROQUEL [Suspect]
     Indication: PSYCHOTIC DISORDER
     Dosage: SEE IMAGE
     Route: 048
     Dates: start: 20080420
  26. SEROQUEL [Suspect]
     Indication: HALLUCINATION, AUDITORY
     Dosage: SEE IMAGE
     Route: 048
     Dates: start: 20080424
  27. SEROQUEL [Suspect]
     Indication: ILLUSION
     Dosage: SEE IMAGE
     Route: 048
     Dates: start: 20080424
  28. SEROQUEL [Suspect]
     Indication: PSYCHOTIC DISORDER
     Dosage: SEE IMAGE
     Route: 048
     Dates: start: 20080424
  29. PARACET (PARACETAMOL) [Concomitant]
  30. DIOVAN COMP (HYDROCHLOROTHIAZIDE, VALSARTAN) TABLET [Concomitant]
  31. SIMVASTATIN [Concomitant]

REACTIONS (5)
  - ANOREXIA [None]
  - DRUG INTERACTION [None]
  - NAUSEA [None]
  - URINARY RETENTION [None]
  - VOMITING [None]
